FAERS Safety Report 10189478 (Version 2)
Quarter: 2014Q2

REPORT INFORMATION
  Report Type: Spontaneous
  Country: US (occurrence: US)
  Receive Date: 20140522
  Receipt Date: 20140522
  Transmission Date: 20141212
  Serious: No
  Sender: FDA-Public Use
  Company Number: US-ASTRAZENECA-2013SE66897

PATIENT
  Age: 57 Year
  Sex: Female
  Weight: 53.1 kg

DRUGS (2)
  1. PULMICORT FLEXHALER [Suspect]
     Indication: ASTHMA
     Dosage: 180 MCG, 1 PUFF DAILY
     Route: 055
  2. PULMICORT FLEXHALER [Suspect]
     Indication: MULTIPLE ALLERGIES
     Dosage: 180 MCG, 1 PUFF DAILY
     Route: 055

REACTIONS (3)
  - Malaise [Unknown]
  - Intentional product misuse [Unknown]
  - Circumstance or information capable of leading to medication error [Unknown]
